FAERS Safety Report 11852657 (Version 1)
Quarter: 2015Q4

REPORT INFORMATION
  Report Type: Spontaneous
  Country: US (occurrence: US)
  Receive Date: 20151218
  Receipt Date: 20151218
  Transmission Date: 20160305
  Serious: Yes (Death)
  Sender: FDA-Public Use
  Company Number: US-LPDUSPRD-20151038

PATIENT
  Age: 18 Year
  Sex: Female

DRUGS (4)
  1. SOTALOL. [Suspect]
     Active Substance: SOTALOL
     Dosage: DOSE VARIED
     Route: 065
  2. METOPROLOL INJECTION, USP (1355-10) [Suspect]
     Active Substance: METOPROLOL
     Dosage: DOSE VARIED
     Route: 065
  3. AMIODARONE [Suspect]
     Active Substance: AMIODARONE
     Dosage: 4 MG /KG/DAY
     Route: 065
  4. ATENOLOL. [Suspect]
     Active Substance: ATENOLOL
     Dosage: DOSE VARIED
     Route: 065

REACTIONS (3)
  - Treatment failure [Fatal]
  - Cardiac arrest [Fatal]
  - Syncope [Fatal]
